FAERS Safety Report 20257338 (Version 1)
Quarter: 2021Q4

REPORT INFORMATION
  Report Type: Spontaneous
  Country: US (occurrence: US)
  Receive Date: 20211230
  Receipt Date: 20211230
  Transmission Date: 20220303
  Serious: Yes (Other)
  Sender: FDA-Public Use
  Company Number: US-GLAXOSMITHKLINE-US2021GSK263491

PATIENT
  Sex: Female

DRUGS (20)
  1. ZANTAC [Suspect]
     Active Substance: RANITIDINE HYDROCHLORIDE
     Indication: Dyspepsia
     Dosage: UNK,PERIODS OF NON USE AND DAILY RX.
     Route: 065
     Dates: start: 199601, end: 201901
  2. ZANTAC [Suspect]
     Active Substance: RANITIDINE HYDROCHLORIDE
     Indication: Dyspepsia
  3. ZANTAC [Suspect]
     Active Substance: RANITIDINE HYDROCHLORIDE
     Indication: Abdominal discomfort
  4. ZANTAC [Suspect]
     Active Substance: RANITIDINE HYDROCHLORIDE
     Indication: Gastric disorder
  5. ZANTAC [Suspect]
     Active Substance: RANITIDINE HYDROCHLORIDE
     Indication: Irritable bowel syndrome
  6. ZANTAC [Suspect]
     Active Substance: RANITIDINE HYDROCHLORIDE
     Indication: Dyspepsia
     Dosage: UNK,PERIODS OF NON USE AND DAILY RX.
     Route: 065
     Dates: start: 199601, end: 201901
  7. ZANTAC [Suspect]
     Active Substance: RANITIDINE HYDROCHLORIDE
     Indication: Dyspepsia
  8. ZANTAC [Suspect]
     Active Substance: RANITIDINE HYDROCHLORIDE
     Indication: Abdominal discomfort
  9. ZANTAC [Suspect]
     Active Substance: RANITIDINE HYDROCHLORIDE
     Indication: Gastric disorder
  10. ZANTAC [Suspect]
     Active Substance: RANITIDINE HYDROCHLORIDE
     Indication: Irritable bowel syndrome
  11. RANITIDINE [Suspect]
     Active Substance: RANITIDINE
     Indication: Dyspepsia
     Dosage: UNK,USED RX OF RANITIDINE DAILY WHILE PRESCRIBED . I??TM NOT SURE IF THEY WERE TABLETS OR CAPSULES
     Route: 065
     Dates: start: 199601, end: 201901
  12. RANITIDINE [Suspect]
     Active Substance: RANITIDINE
     Indication: Dyspepsia
  13. RANITIDINE [Suspect]
     Active Substance: RANITIDINE
     Indication: Abdominal discomfort
  14. RANITIDINE [Suspect]
     Active Substance: RANITIDINE
     Indication: Gastric disorder
  15. RANITIDINE [Suspect]
     Active Substance: RANITIDINE
     Indication: Irritable bowel syndrome
  16. RANITIDINE [Suspect]
     Active Substance: RANITIDINE
     Indication: Dyspepsia
     Dosage: UNK,USED RX OF RANITIDINE DAILY WHILE PRESCRIBED . I??TM NOT SURE IF THEY WERE TABLETS OR CAPSULES
     Route: 065
     Dates: start: 199601, end: 201901
  17. RANITIDINE [Suspect]
     Active Substance: RANITIDINE
     Indication: Dyspepsia
  18. RANITIDINE [Suspect]
     Active Substance: RANITIDINE
     Indication: Abdominal discomfort
  19. RANITIDINE [Suspect]
     Active Substance: RANITIDINE
     Indication: Gastric disorder
  20. RANITIDINE [Suspect]
     Active Substance: RANITIDINE
     Indication: Irritable bowel syndrome

REACTIONS (1)
  - Breast cancer [Unknown]
